FAERS Safety Report 5451381-1 (Version None)
Quarter: 2007Q3

REPORT INFORMATION
  Report Type: 
  Country: None (occurrence: None)
  Receive Date: 20070911
  Receipt Date: 20070911
  Transmission Date: 20080115
  Serious: Yes (Hospitalization)
  Sender: FDA-Public Use
  Company Number: None

PATIENT
  Sex: Female
  Weight: 58.5 kg

DRUGS (15)
  1. DOXIL [Suspect]
     Dosage: 62 MG
  2. VINCRISTINE SULFATE [Suspect]
     Dosage: 2MG
  3. HEPARIN LOCK-FLUSH [Concomitant]
  4. LORAZEPAM [Concomitant]
  5. LUCENTIS [Concomitant]
  6. NORVASC [Concomitant]
  7. PRILOSEC [Concomitant]
  8. PROCRIT [Concomitant]
  9. PROPOXYPHENE HCL [Concomitant]
  10. ROBITUSSIN [Concomitant]
  11. SALT + SODA MOUTH RINSE [Concomitant]
  12. SENOKOT [Concomitant]
  13. SIMVASTATIN [Concomitant]
  14. TEMAZEPAM [Concomitant]
  15. ZOFRAN [Concomitant]

REACTIONS (1)
  - FEBRILE NEUTROPENIA [None]
